FAERS Safety Report 17942645 (Version 2)
Quarter: 2021Q2

REPORT INFORMATION
  Report Type: Spontaneous
  Country: US (occurrence: US)
  Receive Date: 20200625
  Receipt Date: 20210629
  Transmission Date: 20210717
  Serious: Yes (Other)
  Sender: FDA-Public Use
  Company Number: US-TEVA-2020-US-1791625

PATIENT
  Age: 74 Year
  Sex: Male
  Weight: 87.54 kg

DRUGS (1)
  1. CLONAZEPAM. [Suspect]
     Active Substance: CLONAZEPAM
     Indication: SLEEP APNOEA SYNDROME
     Dosage: DOSE: TAKE 1/2 TAB AND 1 AND 1/2 IN THE EVENING BY MOUTH
     Route: 048

REACTIONS (1)
  - Drug dependence [Unknown]
